FAERS Safety Report 4576269-X (Version None)
Quarter: 2005Q1

REPORT INFORMATION
  Report Type: 
  Country: None (occurrence: None)
  Receive Date: 20050207
  Receipt Date: 20050117
  Transmission Date: 20050727
  Serious: Yes (Other)
  Sender: FDA-Public Use
  Company Number: EWC050142344

PATIENT
  Age: 46 Year
  Sex: Female

DRUGS (4)
  1. FLUOXETINE [Suspect]
     Indication: BIPOLAR DISORDER
     Dosage: 20 MG/1 DAY
     Dates: start: 20041019, end: 20041030
  2. FLUOXETINE [Suspect]
     Indication: DEPRESSION
     Dosage: 20 MG/1 DAY
     Dates: start: 20041019, end: 20041030
  3. CITALOPRAM [Concomitant]
  4. ALPRAZOLAM [Concomitant]

REACTIONS (4)
  - ARTHRALGIA [None]
  - ENERGY INCREASED [None]
  - EXCITABILITY [None]
  - HAEMATOMA [None]
